FAERS Safety Report 17037791 (Version 1)
Quarter: 2019Q4

REPORT INFORMATION
  Report Type: Spontaneous
  Country: US (occurrence: US)
  Receive Date: 20191115
  Receipt Date: 20191115
  Transmission Date: 20200122
  Serious: No
  Sender: FDA-Public Use
  Company Number: US-009507513-1911USA005953

PATIENT
  Age: 74 Year
  Sex: Male

DRUGS (13)
  1. MELATONIN [Suspect]
     Active Substance: MELATONIN
     Dosage: 3 MG AT BEDTIME
  2. DROXIDOPA [Interacting]
     Active Substance: DROXIDOPA
     Indication: ORTHOSTATIC HYPOTENSION
     Dosage: 100 MILLIGRAM, TID
  3. ENTACAPONE. [Suspect]
     Active Substance: ENTACAPONE
     Dosage: 200 MG FIVE TIMES DAILY
  4. MIDODRINE HYDROCHLORIDE. [Suspect]
     Active Substance: MIDODRINE HYDROCHLORIDE
     Dosage: 2.5 MILLIGRAM, TID
  5. PYRIDOSTIGMINE BROMIDE. [Suspect]
     Active Substance: PYRIDOSTIGMINE BROMIDE
     Dosage: 30 MILLIGRAM, TID
  6. FLUDROCORTISONE [Suspect]
     Active Substance: FLUDROCORTISONE
     Dosage: 0.1 MILLIGRAM, BID
  7. DROXIDOPA [Interacting]
     Active Substance: DROXIDOPA
     Dosage: 100 MILLIGRAM, TID
  8. DROXIDOPA [Interacting]
     Active Substance: DROXIDOPA
     Dosage: 300 MILLIGRAM, TID
  9. DROXIDOPA [Interacting]
     Active Substance: DROXIDOPA
     Dosage: 200 MILLIGRAM, TID
  10. DROXIDOPA [Interacting]
     Active Substance: DROXIDOPA
     Dosage: 300 MILLIGRAM, BID
  11. DROXIDOPA [Interacting]
     Active Substance: DROXIDOPA
     Dosage: 600 MILLIGRAM, QID
  12. SINEMET [Suspect]
     Active Substance: CARBIDOPA\LEVODOPA
     Indication: PARKINSON^S DISEASE
     Dosage: 25 TO 250 MG SIX AND A HALF TABLETS DAILY
     Route: 048
  13. RIVASTIGMINE. [Suspect]
     Active Substance: RIVASTIGMINE
     Dosage: 4.6 MILLIGRAM, QD

REACTIONS (5)
  - Perseveration [Unknown]
  - Irritability [Unknown]
  - Anxiety [Unknown]
  - Aggression [Unknown]
  - Drug interaction [Unknown]
